FAERS Safety Report 25654593 (Version 1)
Quarter: 2025Q3

REPORT INFORMATION
  Report Type: Spontaneous
  Country: US (occurrence: US)
  Receive Date: 20250807
  Receipt Date: 20250807
  Transmission Date: 20251020
  Serious: Yes (Death, Hospitalization)
  Sender: AMGEN
  Company Number: US-AMGEN-USASP2025152038

PATIENT

DRUGS (1)
  1. PREDNISONE [Suspect]
     Active Substance: PREDNISONE
     Indication: Immunosuppressant drug therapy
     Dosage: MORE THAN OR EQUAL TO 10 MILLIGRAM, QD
     Route: 065

REACTIONS (8)
  - Death [Fatal]
  - Unevaluable event [Unknown]
  - Pulmonary embolism [Unknown]
  - Interstitial lung disease [Unknown]
  - Pneumothorax [Unknown]
  - Pain [Unknown]
  - Atrial fibrillation [Unknown]
  - Cardiac failure [Unknown]
